FAERS Safety Report 7410584-7 (Version None)
Quarter: 2011Q2

REPORT INFORMATION
  Report Type: 
  Country: None (occurrence: None)
  Receive Date: 20110413
  Receipt Date: 20090723
  Transmission Date: 20111010
  Serious: No
  Sender: FDA-Public Use
  Company Number: 2009BI023180

PATIENT
  Sex: Female

DRUGS (1)
  1. TYSABRI [Suspect]
     Indication: MULTIPLE SCLEROSIS
     Route: 042
     Dates: start: 20090506, end: 20090713

REACTIONS (12)
  - BALANCE DISORDER [None]
  - ANHIDROSIS [None]
  - BURNING SENSATION [None]
  - EAR PAIN [None]
  - DIPLOPIA [None]
  - HYPOAESTHESIA FACIAL [None]
  - OROPHARYNGEAL PAIN [None]
  - DRUG INEFFECTIVE [None]
  - BODY TEMPERATURE DECREASED [None]
  - IRRITABILITY [None]
  - MULTIPLE SCLEROSIS [None]
  - DRY MOUTH [None]
